FAERS Safety Report 22209636 (Version 1)
Quarter: 2023Q2

REPORT INFORMATION
  Report Type: Spontaneous
  Country: GB (occurrence: GB)
  Receive Date: 20230414
  Receipt Date: 20230414
  Transmission Date: 20230722
  Serious: Yes (Hospitalization, Other)
  Sender: FDA-Public Use
  Company Number: GB-MHRA-MED-202304061405405670-QWMTC

PATIENT
  Age: 22 Year
  Sex: Male
  Weight: 73 kg

DRUGS (1)
  1. AMOXICILLIN\CLAVULANATE POTASSIUM [Suspect]
     Active Substance: AMOXICILLIN\CLAVULANATE POTASSIUM
     Indication: Uvulitis
     Dosage: 1 DOSAGE FORM, TID ( FOR 10 DAYS) (21 TIMES ONE 500MG/125MG TABLETS,
     Route: 065
     Dates: start: 20230331

REACTIONS (1)
  - Insomnia [Recovered/Resolved with Sequelae]

NARRATIVE: CASE EVENT DATE: 20230331
